FAERS Safety Report 5480599-7 (Version None)
Quarter: 2007Q4

REPORT INFORMATION
  Report Type: 
  Country: None (occurrence: None)
  Receive Date: 20071009
  Receipt Date: 20070927
  Transmission Date: 20080405
  Serious: Yes (Other)
  Sender: FDA-Public Use
  Company Number: US-GENENTECH-246061

PATIENT
  Sex: Female

DRUGS (2)
  1. HERCEPTIN [Suspect]
     Indication: BREAST CANCER METASTATIC
     Dosage: 2 MG/KG, 1/WEEK
     Route: 042
     Dates: start: 19990301
  2. HERCEPTIN [Suspect]
     Dosage: UNK, Q3W
     Route: 042
     Dates: start: 20070601

REACTIONS (3)
  - INFUSION RELATED REACTION [None]
  - PANNICULITIS [None]
  - PRURITUS [None]
